FAERS Safety Report 9989305 (Version 1)
Quarter: 2014Q1

REPORT INFORMATION
  Report Type: Spontaneous
  Country: US (occurrence: US)
  Receive Date: 20140310
  Receipt Date: 20140310
  Transmission Date: 20141002
  Serious: Yes (Other)
  Sender: FDA-Public Use
  Company Number: US-TEVA-467302USA

PATIENT
  Sex: Female

DRUGS (2)
  1. CLARAVIS [Suspect]
     Dates: start: 20130925, end: 20140305
  2. ORAL CONTRACEPTIVE NOS [Concomitant]

REACTIONS (1)
  - Pulmonary thrombosis [Unknown]
